FAERS Safety Report 6575594-0 (Version None)
Quarter: 2010Q1

REPORT INFORMATION
  Report Type: 
  Country: None (occurrence: None)
  Receive Date: 20100208
  Receipt Date: 20100208
  Transmission Date: 20100710
  Serious: Yes (Life-Threatening, Hospitalization, Disabling, Other)
  Sender: FDA-Public Use
  Company Number: None

PATIENT
  Age: 51 Year
  Sex: Female
  Weight: 46.2669 kg

DRUGS (1)
  1. RIBAVIRIN [Suspect]
     Indication: HEPATITIS C
     Dosage: 800 MG DAILY PO 600 MG DAILY PO
     Route: 048
     Dates: start: 20090827, end: 20100104

REACTIONS (7)
  - AMNESIA [None]
  - ANAEMIA [None]
  - COELIAC DISEASE [None]
  - MALAISE [None]
  - MUSCLE ATROPHY [None]
  - OSTEOPETROSIS [None]
  - WEIGHT DECREASED [None]
